FAERS Safety Report 7686037-8 (Version None)
Quarter: 2011Q3

REPORT INFORMATION
  Report Type: 
  Country: None (occurrence: None)
  Receive Date: 20110816
  Receipt Date: 20110730
  Transmission Date: 20111222
  Serious: Yes (Other)
  Sender: FDA-Public Use
  Company Number: US-PFIZER INC-2011181361

PATIENT
  Sex: Female

DRUGS (1)
  1. MORPHINE SULFATE [Suspect]
     Dosage: UNK
     Dates: start: 20000101

REACTIONS (3)
  - HALLUCINATION, VISUAL [None]
  - NAUSEA [None]
  - FEELING ABNORMAL [None]
